FAERS Safety Report 5565145-1 (Version None)
Quarter: 2007Q4

REPORT INFORMATION
  Report Type: 
  Country: None (occurrence: None)
  Receive Date: 20071218
  Receipt Date: 20071213
  Transmission Date: 20080405
  Serious: Yes (Hospitalization, Disabling)
  Sender: FDA-Public Use
  Company Number: US-MERCK-0704USA01484

PATIENT
  Age: 58 Year
  Sex: Female
  Weight: 60 kg

DRUGS (25)
  1. FOSAMAX [Suspect]
     Indication: OSTEOPOROSIS
     Route: 048
     Dates: start: 20020115, end: 20020226
  2. FOSAMAX [Suspect]
     Route: 048
     Dates: start: 20020226, end: 20060203
  3. FOSAMAX [Suspect]
     Indication: OSTEOPENIA
     Route: 048
     Dates: start: 20020115, end: 20020226
  4. FOSAMAX [Suspect]
     Route: 048
     Dates: start: 20020226, end: 20060203
  5. HUMULIN L (INSULIN HUMAN ZINC, EXTENDED) [Concomitant]
     Indication: DIABETES MELLITUS
     Route: 065
     Dates: end: 20020409
  6. HUMULIN 70/30 [Concomitant]
     Indication: DIABETES MELLITUS
     Route: 065
     Dates: end: 20020409
  7. PREDNISONE [Concomitant]
     Indication: SYSTEMIC LUPUS ERYTHEMATOSUS
     Route: 065
     Dates: end: 20020924
  8. PREDNISONE [Concomitant]
     Route: 065
     Dates: start: 20020924
  9. PLAQUENIL [Concomitant]
     Indication: SYSTEMIC LUPUS ERYTHEMATOSUS
     Route: 065
     Dates: start: 20020101
  10. METHOTREXATE [Concomitant]
     Indication: SYSTEMIC LUPUS ERYTHEMATOSUS
     Route: 065
     Dates: start: 20020101, end: 20030101
  11. ELAVIL [Concomitant]
     Route: 065
  12. TYLENOL [Concomitant]
     Route: 065
  13. CELEBREX [Concomitant]
     Route: 065
  14. NIFEREX [Concomitant]
     Route: 065
  15. ACTOS [Concomitant]
     Route: 065
  16. ALTACE [Concomitant]
     Route: 065
  17. FOLIC ACID [Concomitant]
     Route: 065
  18. PREMPRO [Concomitant]
     Route: 065
     Dates: end: 20020924
  19. HYDROCHLOROTHIAZIDE [Concomitant]
     Route: 065
  20. HUMALOG [Concomitant]
     Route: 065
     Dates: start: 20020702
  21. LANTUS [Concomitant]
     Route: 065
     Dates: start: 20020521
  22. LOTREL [Concomitant]
     Route: 065
     Dates: start: 20020702
  23. FUROSEMIDE [Concomitant]
     Route: 065
     Dates: start: 20020924, end: 20030114
  24. NEURONTIN [Concomitant]
     Route: 065
     Dates: start: 20021119
  25. DICLOFENAC [Concomitant]
     Route: 065

REACTIONS (8)
  - ALOPECIA [None]
  - ANXIETY [None]
  - DEPRESSION [None]
  - FRACTURED SACRUM [None]
  - JAW FRACTURE [None]
  - OSTEOMYELITIS [None]
  - PELVIC FRACTURE [None]
  - TOOTH ABSCESS [None]
